FAERS Safety Report 24381756 (Version 1)
Quarter: 2024Q4

REPORT INFORMATION
  Report Type: Spontaneous
  Country: US (occurrence: US)
  Receive Date: 20241001
  Receipt Date: 20241001
  Transmission Date: 20250115
  Serious: No
  Sender: ACCORD
  Company Number: US-Accord-432620

PATIENT
  Sex: Male

DRUGS (2)
  1. NALTREXONE HYDROCHLORIDE [Suspect]
     Active Substance: NALTREXONE HYDROCHLORIDE
     Indication: Alcoholism
     Dosage: STRENGTH: 50 MG, ONCE A DAY
     Route: 048
  2. NALTREXONE HYDROCHLORIDE [Suspect]
     Active Substance: NALTREXONE HYDROCHLORIDE
     Indication: Alcoholism
     Dosage: SECOND DOSE

REACTIONS (4)
  - Fatigue [Unknown]
  - Nausea [Recovered/Resolved]
  - Product substitution issue [Unknown]
  - Somnolence [Recovered/Resolved]
